FAERS Safety Report 6119182-9 (Version None)
Quarter: 2009Q1

REPORT INFORMATION
  Report Type: 
  Country: None (occurrence: None)
  Receive Date: 20090316
  Receipt Date: 20090303
  Transmission Date: 20090719
  Serious: Yes (Death)
  Sender: FDA-Public Use
  Company Number: US-ROCHE-609041

PATIENT
  Sex: Male
  Weight: 86.2 kg

DRUGS (1)
  1. XELODA [Suspect]
     Route: 065

REACTIONS (1)
  - DISEASE PROGRESSION [None]
